FAERS Safety Report 7019229-1 (Version None)
Quarter: 2010Q3

REPORT INFORMATION
  Report Type: 
  Country: None (occurrence: None)
  Receive Date: 20100928
  Receipt Date: 20100920
  Transmission Date: 20110219
  Serious: Yes (Life-Threatening, Hospitalization, Other)
  Sender: FDA-Public Use
  Company Number: BE-AMGEN-KDL439639

PATIENT
  Age: 57 Year
  Sex: Male

DRUGS (7)
  1. NEULASTA [Suspect]
     Indication: CHEMOTHERAPY
     Route: 058
     Dates: start: 20100522, end: 20100703
  2. BLEOMYCIN SULFATE [Suspect]
     Route: 042
     Dates: start: 20100517, end: 20100702
  3. RITUXIMAB [Concomitant]
     Route: 042
     Dates: start: 20100517, end: 20100702
  4. DOXORUBICIN HYDROCHLORIDE [Concomitant]
     Route: 042
     Dates: start: 20100517, end: 20100702
  5. CYCLOPHOSPHAMIDE [Concomitant]
     Route: 042
     Dates: start: 20100517, end: 20100702
  6. VINDESINE [Concomitant]
     Route: 042
     Dates: start: 20100517, end: 20100702
  7. PREDNISONE [Concomitant]
     Route: 042
     Dates: start: 20100517, end: 20100702

REACTIONS (2)
  - INTERSTITIAL LUNG DISEASE [None]
  - NEUTROPHIL COUNT INCREASED [None]
